FAERS Safety Report 5372278-1 (Version None)
Quarter: 2007Q2

REPORT INFORMATION
  Report Type: 
  Country: None (occurrence: None)
  Receive Date: 20070615
  Receipt Date: 20070227
  Transmission Date: 20071010
  Serious: Yes (Other)
  Sender: FDA-Public Use
  Company Number: 200619624US

PATIENT
  Age: 54 Year
  Sex: Female

DRUGS (8)
  1. LANTUS [Suspect]
     Indication: DIABETES MELLITUS INSULIN-DEPENDENT
     Dosage: 20 U
     Dates: start: 20061101
  2. LANTUS [Suspect]
     Dates: start: 20061101
  3. ATORVASTATIN CALCIUM              (LIPITOR) [Concomitant]
  4. ASPIRIN [Concomitant]
  5. PAROXETINE [Concomitant]
  6. ALDACTONE [Concomitant]
  7. ZESTRIL [Concomitant]
  8. METOPROLOL SUCCINATE          (TOPROL) [Concomitant]

REACTIONS (3)
  - BLOOD GLUCOSE INCREASED [None]
  - DRUG INEFFECTIVE [None]
  - VISUAL ACUITY REDUCED [None]
